FAERS Safety Report 4591920-6 (Version None)
Quarter: 2005Q1

REPORT INFORMATION
  Report Type: 
  Country: None (occurrence: None)
  Receive Date: 20050222
  Receipt Date: 20050210
  Transmission Date: 20050727
  Serious: Yes (Death)
  Sender: FDA-Public Use
  Company Number: 200510266BWH

PATIENT

DRUGS (1)
  1. TRASYLOL [Suspect]

REACTIONS (1)
  - HEPATIC FAILURE [None]
